FAERS Safety Report 5125915-0 (Version None)
Quarter: 2006Q4

REPORT INFORMATION
  Report Type: 
  Country: None (occurrence: None)
  Receive Date: 20061012
  Receipt Date: 20061011
  Transmission Date: 20070319
  Serious: Yes (Hospitalization, Other)
  Sender: FDA-Public Use
  Company Number: DE-GLAXOSMITHKLINE-D0051116A

PATIENT
  Age: 76 Year
  Sex: Male
  Weight: 65 kg

DRUGS (2)
  1. AVODART [Suspect]
     Indication: BENIGN PROSTATIC HYPERPLASIA
     Dosage: .5MG PER DAY
     Route: 048
     Dates: start: 20061004, end: 20061010
  2. ASPIRIN [Concomitant]
     Dosage: 100MG PER DAY
     Route: 048

REACTIONS (1)
  - FACIAL PARESIS [None]
